FAERS Safety Report 9775789 (Version 1)
Quarter: 2013Q4

REPORT INFORMATION
  Report Type: Spontaneous
  Country: US (occurrence: US)
  Receive Date: 20131220
  Receipt Date: 20131220
  Transmission Date: 20140711
  Serious: No
  Sender: FDA-Public Use
  Company Number: US-009507513-1310USA015079

PATIENT
  Sex: 0

DRUGS (1)
  1. ISENTRESS [Suspect]

REACTIONS (1)
  - Nephrolithiasis [Unknown]
